FAERS Safety Report 6416713-6 (Version None)
Quarter: 2009Q4

REPORT INFORMATION
  Report Type: 
  Country: None (occurrence: None)
  Receive Date: 20091027
  Receipt Date: 20091015
  Transmission Date: 20100525
  Serious: Yes (Congenital Anomaly)
  Sender: FDA-Public Use
  Company Number: DK-ELI_LILLY_AND_COMPANY-DK200910003670

PATIENT

DRUGS (1)
  1. FONTEX [Suspect]
     Dosage: UNK, UNKNOWN
     Route: 064

REACTIONS (3)
  - DRUG EXPOSURE DURING PREGNANCY [None]
  - HEART DISEASE CONGENITAL [None]
  - MATERNAL DRUGS AFFECTING FOETUS [None]
